FAERS Safety Report 6316078-4 (Version None)
Quarter: 2009Q3

REPORT INFORMATION
  Report Type: 
  Country: None (occurrence: None)
  Receive Date: 20090820
  Receipt Date: 20090811
  Transmission Date: 20100115
  Serious: Yes (Hospitalization, Other)
  Sender: FDA-Public Use
  Company Number: PHEH2009US09094

PATIENT
  Age: 59 Year
  Sex: Female

DRUGS (8)
  1. LOTENSIN [Suspect]
     Dosage: 20 MG, UNK
  2. LOTENSIN [Suspect]
     Dosage: 30MG
  3. LOTENSIN HCT [Suspect]
     Dosage: 20MG
  4. LOTENSIN HCT [Suspect]
     Dosage: 30 MG
  5. NORVASC [Suspect]
     Dosage: 5MG, UNK
     Dates: start: 20090524
  6. NORVASC [Suspect]
     Dosage: 10 MG, UNK
  7. NORVASC [Suspect]
     Dosage: 15 MG. UNK
  8. NORVASC [Suspect]
     Dosage: 20 MG. UNK

REACTIONS (6)
  - CONFUSIONAL STATE [None]
  - DEHYDRATION [None]
  - HEADACHE [None]
  - OEDEMA PERIPHERAL [None]
  - PAIN IN EXTREMITY [None]
  - RENAL FAILURE [None]
